FAERS Safety Report 7978195-2 (Version None)
Quarter: 2011Q4

REPORT INFORMATION
  Report Type: 
  Country: None (occurrence: None)
  Receive Date: 20111209
  Receipt Date: 20111129
  Transmission Date: 20120403
  Serious: Yes (Other)
  Sender: FDA-Public Use
  Company Number: 2011SP056407

PATIENT
  Age: 63 Year
  Sex: Female

DRUGS (1)
  1. NOXAFIL [Suspect]
     Indication: ASPERGILLOSIS
     Dosage: 200 MG;TID
     Dates: start: 20111029, end: 20111108

REACTIONS (1)
  - CHOLESTASIS [None]
